FAERS Safety Report 8400121-2 (Version None)
Quarter: 2012Q2

REPORT INFORMATION
  Report Type: 
  Country: None (occurrence: None)
  Receive Date: 20120531
  Receipt Date: 20120525
  Transmission Date: 20120825
  Serious: Yes (Other)
  Sender: FDA-Public Use
  Company Number: JP-PFIZER INC-2012114849

PATIENT
  Age: 67 Year
  Sex: Female

DRUGS (10)
  1. RABEPRAZOLE SODIUM [Concomitant]
     Indication: GASTROOESOPHAGEAL REFLUX DISEASE
     Dosage: 10 MG, 1X/DAY
     Route: 048
     Dates: start: 20120123
  2. BONOTEO [Concomitant]
     Indication: OSTEOPOROSIS
     Dosage: 50 MG, MONTHLY
     Route: 048
     Dates: start: 20111128
  3. HALCION [Concomitant]
     Indication: INSOMNIA
     Dosage: 0.25 MG, 1X/DAY
     Route: 048
     Dates: start: 20090316
  4. LYRICA [Suspect]
     Indication: PROCEDURAL PAIN
  5. MUCOSOLVAN [Concomitant]
     Indication: BRONCHITIS CHRONIC
     Dosage: 15 MG, 3X/DAY
     Route: 048
     Dates: start: 20090911
  6. APRONAL/CAFFEINE/PARACETAMOL/PROPYPHENAZONE [Concomitant]
     Indication: PROCEDURAL PAIN
     Dosage: UNK
     Dates: start: 20090714
  7. PL GRAN. [Concomitant]
     Indication: PROCEDURAL PAIN
     Dosage: UNK
     Dates: start: 20090714
  8. LYRICA [Suspect]
     Indication: NEURALGIA
     Dosage: 75 MG, 2X/DAY
     Route: 048
     Dates: start: 20120220, end: 20120220
  9. MUCODYNE [Concomitant]
     Indication: BRONCHITIS CHRONIC
     Dosage: 500 MG, 3X/DAY
     Route: 048
     Dates: start: 20090911
  10. HUSCODE [Concomitant]
     Indication: BRONCHITIS CHRONIC
     Dosage: UNK
     Route: 048
     Dates: start: 20090911

REACTIONS (2)
  - SLEEP ATTACKS [None]
  - ROAD TRAFFIC ACCIDENT [None]
